FAERS Safety Report 6152223-1 (Version None)
Quarter: 2009Q2

REPORT INFORMATION
  Report Type: 
  Country: None (occurrence: None)
  Receive Date: 20090410
  Receipt Date: 20080625
  Transmission Date: 20091009
  Serious: No
  Sender: FDA-Public Use
  Company Number: US-ASTRAZENECA-2008UW12717

PATIENT
  Sex: Male
  Weight: 96.8 kg

DRUGS (2)
  1. ZESTORETIC [Suspect]
     Indication: HYPERTENSION
     Route: 048
     Dates: start: 20020401
  2. NSAID [Concomitant]
     Indication: ARTHRITIS

REACTIONS (1)
  - ABDOMINAL PAIN UPPER [None]
